FAERS Safety Report 5207900-3 (Version None)
Quarter: 2007Q1

REPORT INFORMATION
  Report Type: 
  Country: None (occurrence: None)
  Receive Date: 20070115
  Receipt Date: 20070104
  Transmission Date: 20070707
  Serious: Yes (Other)
  Sender: FDA-Public Use
  Company Number: GB-JNJFOC-20070101167

PATIENT
  Sex: Male

DRUGS (3)
  1. REMICADE [Suspect]
     Indication: DRUG USE FOR UNKNOWN INDICATION
     Dosage: 3 INFUSIONS
     Route: 042
  2. METHOTREXATE [Concomitant]
     Route: 065
  3. SULFASALAZINE [Concomitant]
     Route: 065

REACTIONS (2)
  - INFUSION RELATED REACTION [None]
  - PSORIASIS [None]
